FAERS Safety Report 7995126-X (Version None)
Quarter: 2011Q4

REPORT INFORMATION
  Report Type: 
  Country: None (occurrence: None)
  Receive Date: 20111220
  Receipt Date: 20111215
  Transmission Date: 20120403
  Serious: Yes (Hospitalization)
  Sender: FDA-Public Use
  Company Number: US-GLAXOSMITHKLINE-A0957433A

PATIENT
  Sex: Female

DRUGS (2)
  1. VENTOLIN [Suspect]
     Route: 065
  2. COREG CR [Suspect]
     Indication: PRODUCT USED FOR UNKNOWN INDICATION
     Dosage: 10MG UNKNOWN
     Route: 065

REACTIONS (1)
  - CARDIAC FAILURE CONGESTIVE [None]
